FAERS Safety Report 10038018 (Version 1)
Quarter: 2014Q1

REPORT INFORMATION
  Report Type: Spontaneous
  Country: US (occurrence: None)
  Receive Date: 20140325
  Receipt Date: 20140325
  Transmission Date: 20141002
  Serious: No
  Sender: FDA-Public Use
  Company Number: None

PATIENT
  Sex: Female

DRUGS (1)
  1. RESILIENCE LIFT FIRMING SCULPTING FACE AND NECK CREME SPF 15 NML COMBO [Suspect]
     Dates: start: 20140318, end: 20140318

REACTIONS (2)
  - Hypersensitivity [None]
  - Reaction to drug excipients [None]
